FAERS Safety Report 11263947 (Version 3)
Quarter: 2015Q4

REPORT INFORMATION
  Report Type: Spontaneous
  Country: US (occurrence: US)
  Receive Date: 20150713
  Receipt Date: 20151001
  Transmission Date: 20160304
  Serious: Yes (Hospitalization)
  Sender: FDA-Public Use
  Company Number: US-JNJFOC-20150609424

PATIENT
  Sex: Male
  Weight: 118.84 kg

DRUGS (2)
  1. ZYTIGA [Suspect]
     Active Substance: ABIRATERONE ACETATE
     Indication: PRODUCT USED FOR UNKNOWN INDICATION
     Dosage: END OF MARCH TO BEGINNING OF APRIL
     Route: 048
     Dates: start: 20150103, end: 20150405
  2. PREDNISONE. [Concomitant]
     Active Substance: PREDNISONE
     Indication: PRODUCT USED FOR UNKNOWN INDICATION
     Route: 048
     Dates: start: 20150103, end: 20150405

REACTIONS (2)
  - Prostatic specific antigen increased [Unknown]
  - Cardiac failure congestive [Recovered/Resolved]
